FAERS Safety Report 7685186-8 (Version None)
Quarter: 2011Q3

REPORT INFORMATION
  Report Type: 
  Country: None (occurrence: None)
  Receive Date: 20110816
  Receipt Date: 20110804
  Transmission Date: 20111222
  Serious: Yes (Other)
  Sender: FDA-Public Use
  Company Number: FR-PFIZER INC-2011178152

PATIENT
  Sex: Female

DRUGS (3)
  1. CERUBIDINE [Suspect]
     Indication: ACUTE MYELOID LEUKAEMIA
     Dosage: 100.5 MG, 1X/DAY
     Route: 042
     Dates: start: 20081231, end: 20090102
  2. CYTARABINE [Suspect]
     Indication: ACUTE MYELOID LEUKAEMIA
     Dosage: 336 MG, 1X/DAY
     Route: 042
     Dates: start: 20081231, end: 20090106
  3. GEMTUZUMAB OZOGAMICIN [Suspect]
     Indication: ACUTE MYELOID LEUKAEMIA
     Dosage: 10 MG, 1X/DAY
     Route: 042
     Dates: start: 20090103, end: 20090103

REACTIONS (1)
  - BRONCHOPULMONARY ASPERGILLOSIS [None]
